FAERS Safety Report 24874757 (Version 1)
Quarter: 2025Q1

REPORT INFORMATION
  Report Type: Spontaneous
  Country: US (occurrence: US)
  Receive Date: 20250122
  Receipt Date: 20250122
  Transmission Date: 20250408
  Serious: Yes (Death, Other)
  Sender: AMGEN
  Company Number: US-AMGEN-USASP2025007800

PATIENT
  Age: 89 Year
  Sex: Male

DRUGS (4)
  1. PREDNISONE [Suspect]
     Active Substance: PREDNISONE
     Indication: Acute respiratory failure
     Dosage: 60 MILLIGRAM, QD, (1 MG/KG/DAY)
     Route: 065
  2. PREDNISONE [Suspect]
     Active Substance: PREDNISONE
     Route: 065
  3. RITUXIMAB [Suspect]
     Active Substance: RITUXIMAB
     Indication: Marginal zone lymphoma
     Route: 065
  4. RITUXIMAB [Suspect]
     Active Substance: RITUXIMAB
     Indication: Evidence based treatment

REACTIONS (4)
  - Multimorbidity [Fatal]
  - Cardiac failure [Unknown]
  - Drug effective for unapproved indication [Unknown]
  - Off label use [Unknown]
